FAERS Safety Report 5300635-8 (Version None)
Quarter: 2007Q2

REPORT INFORMATION
  Report Type: 
  Country: None (occurrence: None)
  Receive Date: 20070418
  Receipt Date: 20070109
  Transmission Date: 20071010
  Serious: Yes (Other)
  Sender: FDA-Public Use
  Company Number: BE-ELI_LILLY_AND_COMPANY-BE200605002618

PATIENT
  Age: 78 Year
  Sex: Female
  Weight: 56 kg

DRUGS (6)
  1. FORTEO [Suspect]
     Indication: OSTEOPOROSIS POSTMENOPAUSAL
     Dosage: 20 UG, DAILY (1/D)
     Route: 058
     Dates: start: 20060307, end: 20060323
  2. ELTHYRONE [Concomitant]
     Indication: HYPOTHYROIDISM
     Dosage: 100 UG, DAILY (1/D)
  3. CALCIUM W/VITAMIN D NOS [Concomitant]
     Indication: OSTEOPOROSIS
  4. ZANTAC [Concomitant]
     Indication: ABDOMINAL PAIN UPPER
     Dosage: 300 MG, DAILY (1/D)
  5. DAFALGAN                                /FRA/ [Concomitant]
     Indication: PAIN
     Dosage: 1 G, 3/D
  6. LORAMET                                 /BEL/ [Concomitant]
     Indication: INSOMNIA
     Dosage: 2 MG, DAILY (1/D)

REACTIONS (3)
  - ERYTHEMA [None]
  - FATIGUE [None]
  - OEDEMA PERIPHERAL [None]
